FAERS Safety Report 5080696-4 (Version None)
Quarter: 2006Q3

REPORT INFORMATION
  Report Type: 
  Country: None (occurrence: None)
  Receive Date: 20060809
  Receipt Date: 20060728
  Transmission Date: 20061208
  Serious: Yes (Life-Threatening, Hospitalization)
  Sender: FDA-Public Use
  Company Number: T200600817

PATIENT
  Age: 48 Year
  Sex: Male

DRUGS (1)
  1. OPTIRAY 160 [Suspect]
     Indication: SCAN BRAIN
     Dosage: 50 ML, HAND HELD PRE-FILLED SYRINGE,SINGLE, INTRAVENOUS
     Route: 042
     Dates: start: 20060706, end: 20060706

REACTIONS (5)
  - EXOPHTHALMOS [None]
  - HYPERHIDROSIS [None]
  - MUSCLE CONTRACTIONS INVOLUNTARY [None]
  - PERIORBITAL OEDEMA [None]
  - PRURITUS [None]
